FAERS Safety Report 7771700-0 (Version None)
Quarter: 2011Q3

REPORT INFORMATION
  Report Type: 
  Country: None (occurrence: None)
  Receive Date: 20110922
  Receipt Date: 20110221
  Transmission Date: 20111222
  Serious: Yes (Other)
  Sender: FDA-Public Use
  Company Number: US-ASTRAZENECA-2011SE09662

PATIENT
  Age: 51 Year
  Sex: Female
  Weight: 58.1 kg

DRUGS (6)
  1. WELLBUTRIN [Concomitant]
  2. SEROQUEL [Suspect]
     Indication: SLEEP DISORDER
     Route: 048
     Dates: start: 20020101, end: 20110107
  3. LAMICTAL [Concomitant]
  4. RESTORIL [Concomitant]
  5. SEROQUEL [Suspect]
     Route: 048
  6. SEROQUEL [Suspect]
     Route: 048
     Dates: start: 20110107

REACTIONS (6)
  - CRYING [None]
  - THERAPEUTIC RESPONSE UNEXPECTED [None]
  - INSOMNIA [None]
  - NO ADVERSE EVENT [None]
  - SUICIDAL IDEATION [None]
  - DYSKINESIA [None]
